FAERS Safety Report 8890569 (Version 2)
Quarter: 2012Q4

REPORT INFORMATION
  Report Type: Report from Study
  Country: CN (occurrence: CN)
  Receive Date: 20121106
  Receipt Date: 20121227
  Transmission Date: 20130627
  Serious: Yes (Hospitalization)
  Sender: FDA-Public Use
  Company Number: CN-009507513-1111USC00027

PATIENT
  Age: 56 Year
  Sex: Male
  Weight: 65.4 kg

DRUGS (7)
  1. BLINDED METFORMIN [Suspect]
     Indication: TYPE 2 DIABETES MELLITUS
     Dosage: UNK UNK, qd
     Route: 048
     Dates: start: 20110930, end: 20111114
  2. BLINDED PLACEBO [Suspect]
     Indication: TYPE 2 DIABETES MELLITUS
     Dosage: UNK UNK, qd
     Route: 048
     Dates: start: 20110930, end: 20111114
  3. BLINDED POST TRIAL THERAPY [Suspect]
     Indication: TYPE 2 DIABETES MELLITUS
     Dosage: UNK UNK, qd
     Route: 048
     Dates: start: 20110930, end: 20111114
  4. BLINDED PRE TRIAL THERAPY [Suspect]
     Indication: TYPE 2 DIABETES MELLITUS
     Dosage: UNK UNK, qd
     Route: 048
     Dates: start: 20110930, end: 20111114
  5. BLINDED SITAGLIPTIN PHOSPHATE [Suspect]
     Indication: TYPE 2 DIABETES MELLITUS
     Dosage: UNK UNK, qd
     Route: 048
     Dates: start: 20110930, end: 20111114
  6. [COMPOSITION UNSPECIFIED] [Concomitant]
     Indication: FATIGUE
     Dosage: UNK UNK, bid
     Route: 048
     Dates: start: 20111110, end: 20111110
  7. [COMPOSITION UNSPECIFIED] [Concomitant]
     Indication: SEXUAL DYSFUNCTION

REACTIONS (1)
  - Transaminases increased [Recovered/Resolved]
